FAERS Safety Report 6071850-3 (Version None)
Quarter: 2009Q1

REPORT INFORMATION
  Report Type: 
  Country: None (occurrence: None)
  Receive Date: 20090205
  Receipt Date: 20090120
  Transmission Date: 20090719
  Serious: Yes (Other)
  Sender: FDA-Public Use
  Company Number: 2009S1001073

PATIENT
  Age: 63 Year
  Sex: Female

DRUGS (3)
  1. DIURIN (FUROSEMIDE) (40 MG) [Suspect]
     Indication: CARDIAC FAILURE CONGESTIVE
     Dosage: 40 MG;DAILY;ORAL ; 40 MG;TWICE A DAY;ORAL
     Route: 048
     Dates: start: 20081213, end: 20081215
  2. DIURIN (FUROSEMIDE) (40 MG) [Suspect]
     Indication: CARDIAC FAILURE CONGESTIVE
     Dosage: 40 MG;DAILY;ORAL ; 40 MG;TWICE A DAY;ORAL
     Route: 048
     Dates: start: 20081215
  3. INHIBACE /00498401/ [Concomitant]

REACTIONS (7)
  - DEPRESSION [None]
  - DIARRHOEA [None]
  - DIZZINESS [None]
  - FEELING COLD [None]
  - MALAISE [None]
  - NAUSEA [None]
  - SOMNOLENCE [None]
